FAERS Safety Report 7373888-2 (Version None)
Quarter: 2011Q1

REPORT INFORMATION
  Report Type: 
  Country: None (occurrence: None)
  Receive Date: 20110325
  Receipt Date: 20110321
  Transmission Date: 20110831
  Serious: No
  Sender: FDA-Public Use
  Company Number: US-TEVA-272662USA

PATIENT
  Sex: Female
  Weight: 81.72 kg

DRUGS (2)
  1. SERETIDE [Concomitant]
     Indication: ASTHMA
     Dates: start: 20110320
  2. ALBUTEROL SULFATE AUTOHALER [Suspect]
     Indication: ASTHMA
     Route: 055
     Dates: start: 20100901

REACTIONS (1)
  - DRUG INEFFECTIVE [None]
